FAERS Safety Report 6181049-8 (Version None)
Quarter: 2009Q2

REPORT INFORMATION
  Report Type: 
  Country: None (occurrence: None)
  Receive Date: 20090504
  Receipt Date: 20090504
  Transmission Date: 20091009
  Serious: Yes (Death)
  Sender: FDA-Public Use
  Company Number: None

PATIENT
  Age: 50 Year
  Sex: Male
  Weight: 49.8957 kg

DRUGS (1)
  1. BOTOX [Suspect]
     Indication: BLADDER SPASM

REACTIONS (7)
  - ASTHENIA [None]
  - CHOKING [None]
  - CONDITION AGGRAVATED [None]
  - DYSPHAGIA [None]
  - DYSPNOEA [None]
  - INJURY [None]
  - PNEUMONIA ASPIRATION [None]
